FAERS Safety Report 6001002-4 (Version None)
Quarter: 2008Q4

REPORT INFORMATION
  Report Type: 
  Country: None (occurrence: None)
  Receive Date: 20081215
  Receipt Date: 20080423
  Transmission Date: 20090506
  Serious: No
  Sender: FDA-Public Use
  Company Number: US-BRISTOL-MYERS SQUIBB COMPANY-14162481

PATIENT
  Sex: Female

DRUGS (2)
  1. QUESTRAN [Suspect]
     Route: 065
  2. SYNTHROID [Suspect]
     Route: 065

REACTIONS (2)
  - ALOPECIA [None]
  - BLOOD THYROID STIMULATING HORMONE INCREASED [None]
